FAERS Safety Report 9148591 (Version 1)
Quarter: 2013Q1

REPORT INFORMATION
  Report Type: Spontaneous
  Country: US (occurrence: None)
  Receive Date: 20130228
  Receipt Date: 20130228
  Transmission Date: 20140127
  Serious: No
  Sender: FDA-Public Use
  Company Number: None

PATIENT
  Age: 45 Year
  Sex: Female
  Weight: 65.9 kg

DRUGS (2)
  1. VYTORIN [Suspect]
     Indication: BLOOD CHOLESTEROL INCREASED
     Dosage: 1 PILL PER DAY QHS, 10-40 I PER DAY PO
     Route: 048
     Dates: start: 201307
  2. LYBREL [Concomitant]

REACTIONS (1)
  - Abdominal pain [None]
